FAERS Safety Report 6115912-0 (Version None)
Quarter: 2009Q1

REPORT INFORMATION
  Report Type: 
  Country: None (occurrence: None)
  Receive Date: 20090311
  Receipt Date: 20090223
  Transmission Date: 20090719
  Serious: Yes (Other)
  Sender: FDA-Public Use
  Company Number: 8043698

PATIENT
  Age: 54 Year
  Sex: Male

DRUGS (3)
  1. PREDNISOLONE [Suspect]
     Indication: POLYARTERITIS NODOSA
     Dosage: 50 MG /D
  2. PREDNISOLONE [Suspect]
     Indication: POLYARTERITIS NODOSA
  3. PREDNISOLONE [Suspect]
     Indication: POLYARTERITIS NODOSA

REACTIONS (6)
  - DISEASE RECURRENCE [None]
  - PENILE VASCULAR DISORDER [None]
  - POLYARTERITIS NODOSA [None]
  - TESTICULAR DISORDER [None]
  - URETHRAL ABSCESS [None]
  - URETHRAL FISTULA [None]
